FAERS Safety Report 7052594-8 (Version None)
Quarter: 2010Q4

REPORT INFORMATION
  Report Type: 
  Country: None (occurrence: None)
  Receive Date: 20101019
  Receipt Date: 20101012
  Transmission Date: 20110411
  Serious: Yes (Disabling)
  Sender: FDA-Public Use
  Company Number: GB-PFIZER INC-2010038620

PATIENT
  Age: 38 Year
  Sex: Male
  Weight: 80 kg

DRUGS (4)
  1. AZITHROMYCIN [Suspect]
     Indication: BRONCHIECTASIS
     Dosage: UNK
  2. OCTAGAM [Suspect]
     Indication: PRIMARY IMMUNODEFICIENCY SYNDROME
     Dosage: 40 G, 1X/DAY
     Route: 042
     Dates: start: 20090528, end: 20090528
  3. IMMUNOGLOBULIN HUMAN NORMAL [Suspect]
     Dosage: 3 G, UNK
     Route: 058
     Dates: start: 20100120
  4. ACETYLSALICYLIC ACID [Concomitant]

REACTIONS (2)
  - ALOPECIA [None]
  - DERMATITIS EXFOLIATIVE [None]
